FAERS Safety Report 18531474 (Version 1)
Quarter: 2020Q4

REPORT INFORMATION
  Report Type: Other
  Country: TW (occurrence: TW)
  Receive Date: 20201122
  Receipt Date: 20201122
  Transmission Date: 20210114
  Serious: Yes (Other)
  Sender: FDA-Public Use
  Company Number: TW-ROCHE-2713983

PATIENT

DRUGS (1)
  1. CAPECITABINE. [Suspect]
     Active Substance: CAPECITABINE
     Indication: HEPATOCELLULAR CARCINOMA
     Dosage: 14 DAYS ON TREATMENT, DAYS 1 THROUGH 14, AND 7 DAYS OFF TREATMENT
     Route: 048

REACTIONS (15)
  - Aspartate aminotransferase increased [Unknown]
  - Decreased appetite [Unknown]
  - Platelet count abnormal [Unknown]
  - Neutrophil count abnormal [Unknown]
  - Abdominal pain [Unknown]
  - Haemoglobin abnormal [Unknown]
  - Hyponatraemia [Unknown]
  - Dyspnoea [Unknown]
  - Lymphopenia [Unknown]
  - Hyperbilirubinaemia [Unknown]
  - Abdominal distension [Unknown]
  - Alanine aminotransferase abnormal [Unknown]
  - Diarrhoea [Unknown]
  - White blood cell disorder [Unknown]
  - Granulocytes abnormal [Unknown]
